FAERS Safety Report 11112763 (Version 1)
Quarter: 2015Q2

REPORT INFORMATION
  Report Type: Spontaneous
  Country: US (occurrence: US)
  Receive Date: 20150514
  Receipt Date: 20150514
  Transmission Date: 20150821
  Serious: Yes (Death)
  Sender: FDA-Public Use
  Company Number: US-OTSUKA PHARMACEUTICAL CO.-2015_000233

PATIENT
  Sex: Male

DRUGS (1)
  1. DACOGEN [Suspect]
     Active Substance: DECITABINE
     Indication: CHRONIC MYELOMONOCYTIC LEUKAEMIA
     Route: 065

REACTIONS (4)
  - Cellulitis [Unknown]
  - Chronic myelomonocytic leukaemia [Fatal]
  - Disease complication [Unknown]
  - Death [Fatal]
